FAERS Safety Report 10232806 (Version 6)
Quarter: 2017Q1

REPORT INFORMATION
  Report Type: Report from Study
  Country: BR (occurrence: BR)
  Receive Date: 20140612
  Receipt Date: 20170102
  Transmission Date: 20170428
  Serious: Yes (Hospitalization, Other)
  Sender: FDA-Public Use
  Company Number: PHHY2014BR053853

PATIENT
  Sex: Male
  Weight: 50 kg

DRUGS (5)
  1. EXJADE [Suspect]
     Active Substance: DEFERASIROX
     Indication: SICKLE CELL ANAEMIA
     Dosage: 30 MG/KG, (3 DF OF 500 MG) QD
     Route: 048
  2. FOLIC ACID. [Concomitant]
     Active Substance: FOLIC ACID
     Indication: PRODUCT USED FOR UNKNOWN INDICATION
     Dosage: 1 DF, QD
     Route: 065
  3. HYDROXYUREA. [Concomitant]
     Active Substance: HYDROXYUREA
     Indication: HAEMOGLOBIN S INCREASED
     Dosage: 2 DF, QD
     Route: 065
  4. EXJADE [Suspect]
     Active Substance: DEFERASIROX
     Indication: SERUM FERRITIN INCREASED
  5. XARELTO [Concomitant]
     Active Substance: RIVAROXABAN
     Indication: PRODUCT USED FOR UNKNOWN INDICATION
     Route: 065

REACTIONS (10)
  - Pharyngitis [Unknown]
  - Pain [Unknown]
  - Pneumonia [Unknown]
  - Arthralgia [Unknown]
  - Abdominal pain upper [Unknown]
  - Sickle cell anaemia with crisis [Recovering/Resolving]
  - Infection [Recovered/Resolved]
  - Sickle cell anaemia with crisis [Recovered/Resolved]
  - Malaise [Unknown]
  - Nausea [Unknown]
